FAERS Safety Report 24313658 (Version 1)
Quarter: 2024Q3

REPORT INFORMATION
  Report Type: Spontaneous
  Country: PL (occurrence: None)
  Receive Date: 20240912
  Receipt Date: 20240912
  Transmission Date: 20241017
  Serious: Yes (Other)
  Sender: ASTRAZENECA
  Company Number: 2024A205190

PATIENT
  Sex: Male

DRUGS (3)
  1. CALQUENCE [Suspect]
     Active Substance: ACALABRUTINIB
     Indication: Chronic lymphocytic leukaemia
     Route: 048
     Dates: start: 20230601
  2. CALQUENCE [Concomitant]
     Active Substance: ACALABRUTINIB
  3. CALQUENCE [Concomitant]
     Active Substance: ACALABRUTINIB

REACTIONS (5)
  - Leukocytosis [Unknown]
  - Lymphadenopathy [Unknown]
  - Hordeolum [Unknown]
  - Furuncle [Unknown]
  - Sinusitis [Unknown]

NARRATIVE: CASE EVENT DATE: 20230601
